FAERS Safety Report 8159124-8 (Version None)
Quarter: 2012Q1

REPORT INFORMATION
  Report Type: 
  Country: None (occurrence: None)
  Receive Date: 20120103
  Receipt Date: 20111122
  Transmission Date: 20120608
  Serious: No
  Sender: FDA-Public Use
  Company Number: AE-2011-003906

PATIENT
  Age: 61 Year
  Sex: Female
  Weight: 63.9572 kg

DRUGS (4)
  1. PEGINTERFERON (PEGINTERFERON ALFA-2A) [Concomitant]
  2. INCIVEK [Suspect]
     Dosage: 2250 MG (750 MG, 1 IN 8 HR), ORAL
     Route: 048
     Dates: start: 20111001
  3. RIBAVIRIN [Concomitant]
  4. TRAZODONE HCL [Concomitant]

REACTIONS (2)
  - FATIGUE [None]
  - HAEMATOCHEZIA [None]
